FAERS Safety Report 26150706 (Version 1)
Quarter: 2025Q4

REPORT INFORMATION
  Report Type: Spontaneous
  Country: US (occurrence: US)
  Receive Date: 20251212
  Receipt Date: 20251212
  Transmission Date: 20260118
  Serious: Yes (Disabling, Other)
  Sender: MERZ
  Company Number: US-ACORDA THERAPEUTICS IRELAND LIMITED-ACO_179956_2025

PATIENT

DRUGS (3)
  1. INBRIJA [Suspect]
     Active Substance: LEVODOPA
     Indication: Parkinson^s disease
     Dosage: UNK
     Route: 065
  2. CERDELGA [Suspect]
     Active Substance: ELIGLUSTAT
     Indication: Gaucher^s disease
     Dosage: UNK, Q 12 HRS
     Route: 065
     Dates: start: 20190907
  3. CERDELGA [Suspect]
     Active Substance: ELIGLUSTAT
     Dosage: TWO PILLS, QD
     Route: 048
     Dates: start: 19970915

REACTIONS (9)
  - Parkinson^s disease [Not Recovered/Not Resolved]
  - Loss of consciousness [Not Recovered/Not Resolved]
  - Gait inability [Not Recovered/Not Resolved]
  - Hallucination [Not Recovered/Not Resolved]
  - Gastrostomy [Recovering/Resolving]
  - Weight decreased [Recovering/Resolving]
  - Dysphagia [Not Recovered/Not Resolved]
  - Visual impairment [Not Recovered/Not Resolved]
  - Dyskinesia [Not Recovered/Not Resolved]

NARRATIVE: CASE EVENT DATE: 20170101
